FAERS Safety Report 5888131-0 (Version None)
Quarter: 2008Q3

REPORT INFORMATION
  Report Type: 
  Country: None (occurrence: None)
  Receive Date: 20080918
  Receipt Date: 20080909
  Transmission Date: 20090109
  Serious: Yes (Death, Hospitalization)
  Sender: FDA-Public Use
  Company Number: US-BAXTER-2008BH009559

PATIENT
  Age: 76 Year
  Sex: Male
  Weight: 54 kg

DRUGS (4)
  1. ATIVAN [Suspect]
     Indication: PREMEDICATION
     Route: 065
     Dates: start: 20051103, end: 20051103
  2. DIPHENHYDRAMINE HCL [Suspect]
     Indication: PREMEDICATION
     Route: 065
     Dates: start: 20051103, end: 20051103
  3. CARBOPLATIN [Suspect]
     Indication: NON-SMALL CELL LUNG CANCER
     Route: 042
     Dates: start: 20051103, end: 20051103
  4. PACLITAXEL [Suspect]
     Indication: NON-SMALL CELL LUNG CANCER
     Route: 042
     Dates: start: 20051103, end: 20051103

REACTIONS (3)
  - ACUTE RESPIRATORY FAILURE [None]
  - DISEASE PROGRESSION [None]
  - HYPERCAPNIA [None]
